FAERS Safety Report 20950339 (Version 1)
Quarter: 2022Q2

REPORT INFORMATION
  Report Type: Spontaneous
  Country: US (occurrence: None)
  Receive Date: 20220610
  Receipt Date: 20220610
  Transmission Date: 20220721
  Serious: No
  Sender: FDA-Public Use
  Company Number: None

PATIENT
  Age: 23 Year
  Sex: Female

DRUGS (1)
  1. MAKENA [Suspect]
     Active Substance: HYDROXYPROGESTERONE CAPROATE
     Indication: Product used for unknown indication
     Dosage: FREQUENCY : WEEKLY;?
     Route: 058
     Dates: start: 20220401, end: 20220610

REACTIONS (5)
  - Nausea [None]
  - Vomiting [None]
  - Injection site bruising [None]
  - Injection site inflammation [None]
  - Injection site pruritus [None]

NARRATIVE: CASE EVENT DATE: 20220610
